FAERS Safety Report 10577193 (Version 3)
Quarter: 2015Q1

REPORT INFORMATION
  Report Type: Spontaneous
  Country: US (occurrence: US)
  Receive Date: 20141111
  Receipt Date: 20150220
  Transmission Date: 20150720
  Serious: No
  Sender: FDA-Public Use
  Company Number: US-PFIZER INC-2014306765

PATIENT
  Age: 71 Year
  Sex: Female

DRUGS (3)
  1. AROMASIN [Suspect]
     Active Substance: EXEMESTANE
     Indication: HEPATIC CANCER
     Dosage: 25 MG, DAILY
     Dates: start: 20140912, end: 20140913
  2. EXEMESTANE. [Suspect]
     Active Substance: EXEMESTANE
     Indication: HEPATIC CANCER
     Dosage: 25 MG, 1X/DAY
     Dates: start: 20140914
  3. AROMASIN [Suspect]
     Active Substance: EXEMESTANE
     Dosage: 25 MG, DAILY
     Dates: start: 20140916, end: 20140919

REACTIONS (4)
  - Disease progression [Not Recovered/Not Resolved]
  - Nausea [Not Recovered/Not Resolved]
  - Hepatic cancer [Not Recovered/Not Resolved]
  - Product use issue [Unknown]

NARRATIVE: CASE EVENT DATE: 20140912
